FAERS Safety Report 4286919-3 (Version None)
Quarter: 2004Q1

REPORT INFORMATION
  Report Type: 
  Country: None (occurrence: None)
  Receive Date: 20040204
  Receipt Date: 20040120
  Transmission Date: 20041129
  Serious: No
  Sender: FDA-Public Use
  Company Number: S03-USA-05112-01

PATIENT
  Age: 84 Year
  Sex: Female

DRUGS (2)
  1. CELEXA [Suspect]
     Indication: ANXIETY
     Dosage: 20 MG QD PO
     Route: 048
     Dates: start: 20030101, end: 20031105
  2. TIMOPTIC [Concomitant]

REACTIONS (8)
  - EAR PAIN [None]
  - FACIAL PAIN [None]
  - FORMICATION [None]
  - HEADACHE [None]
  - INSOMNIA [None]
  - MENTAL DISORDER [None]
  - TINNITUS [None]
  - TOOTH DISORDER [None]
